FAERS Safety Report 9643500 (Version 3)
Quarter: 2013Q4

REPORT INFORMATION
  Report Type: Report from Study
  Country: JP (occurrence: JP)
  Receive Date: 20131024
  Receipt Date: 20131217
  Transmission Date: 20140711
  Serious: Yes (Hospitalization)
  Sender: FDA-Public Use
  Company Number: JP-JNJFOC-20131011698

PATIENT
  Age: 77 Year
  Sex: Male
  Weight: 55 kg

DRUGS (14)
  1. SIMPONI [Suspect]
     Indication: RHEUMATOID ARTHRITIS
     Route: 058
     Dates: start: 20130508, end: 20130508
  2. SIMPONI [Suspect]
     Indication: RHEUMATOID ARTHRITIS
     Route: 058
     Dates: start: 20130603, end: 20130603
  3. SIMPONI [Suspect]
     Indication: RHEUMATOID ARTHRITIS
     Route: 058
     Dates: start: 20130702, end: 20130702
  4. SIMPONI [Suspect]
     Indication: RHEUMATOID ARTHRITIS
     Route: 058
     Dates: start: 20130730, end: 20130730
  5. SIMPONI [Suspect]
     Indication: RHEUMATOID ARTHRITIS
     Route: 058
     Dates: start: 20130924, end: 20130924
  6. SIMPONI [Suspect]
     Indication: RHEUMATOID ARTHRITIS
     Route: 058
     Dates: start: 20131022
  7. SIMPONI [Suspect]
     Indication: RHEUMATOID ARTHRITIS
     Route: 058
     Dates: start: 20130827, end: 20130827
  8. RHEUMATREX [Concomitant]
     Route: 048
     Dates: start: 20110611, end: 20121120
  9. RHEUMATREX [Concomitant]
     Route: 048
     Dates: start: 20121208, end: 20131001
  10. RHEUMATREX [Concomitant]
     Route: 048
     Dates: start: 20131023
  11. PROGRAF [Concomitant]
     Indication: RHEUMATOID ARTHRITIS
     Route: 065
  12. FOLIAMIN [Concomitant]
     Route: 065
  13. MAGMITT [Concomitant]
     Indication: RECTOSIGMOID CANCER
     Route: 048
  14. DAIKENCHUUTOU (HERBAL PREPARATION) [Concomitant]
     Indication: RECTOSIGMOID CANCER
     Route: 048

REACTIONS (1)
  - Rectosigmoid cancer [Recovered/Resolved]
